FAERS Safety Report 9314502 (Version 2)
Quarter: 2014Q1

REPORT INFORMATION
  Report Type: Spontaneous
  Country: US (occurrence: US)
  Receive Date: 20130529
  Receipt Date: 20140207
  Transmission Date: 20141002
  Serious: No
  Sender: FDA-Public Use
  Company Number: US-PFIZER INC-2013159812

PATIENT
  Age: 60 Year
  Sex: Female
  Weight: 58.96 kg

DRUGS (15)
  1. ALPRAZOLAM [Suspect]
     Dosage: UNK
  2. CELEBREX [Suspect]
     Dosage: UNK
  3. CLARITHROMYCIN [Suspect]
     Dosage: UNK
  4. DOXYCYCLINE HYCLATE [Suspect]
     Dosage: UNK
  5. GABAPENTIN [Suspect]
     Dosage: UNK
  6. PAROXETINE [Suspect]
     Dosage: UNK
  7. ZOLOFT [Suspect]
     Dosage: UNK
  8. EFFEXOR [Suspect]
     Dosage: UNK
  9. EFFEXOR XR [Suspect]
     Dosage: UNK
  10. SERTRALINE HCL [Suspect]
     Dosage: UNK
  11. PREDNISONE [Suspect]
     Dosage: UNK
  12. CEFUROXIME [Suspect]
     Dosage: UNK
  13. AMITRIPTYLINE [Suspect]
     Dosage: UNK
  14. BACTRIM [Suspect]
     Dosage: UNK
  15. PYRETHRINS [Suspect]
     Dosage: UNK

REACTIONS (1)
  - Drug hypersensitivity [Unknown]
